FAERS Safety Report 16163643 (Version 2)
Quarter: 2019Q3

REPORT INFORMATION
  Report Type: Spontaneous
  Country: US (occurrence: US)
  Receive Date: 20190405
  Receipt Date: 20190725
  Transmission Date: 20191004
  Serious: Yes (Other)
  Sender: FDA-Public Use
  Company Number: US-PFIZER INC-2019142018

PATIENT
  Age: 57 Year
  Sex: Female

DRUGS (4)
  1. XELJANZ XR [Suspect]
     Active Substance: TOFACITINIB CITRATE
     Indication: PSORIATIC ARTHROPATHY
     Dosage: 11 MG, 1X/DAY
     Dates: start: 201904
  2. PREDNISONE. [Concomitant]
     Active Substance: PREDNISONE
     Dosage: UNK
  3. COREG [Concomitant]
     Active Substance: CARVEDILOL
     Dosage: UNK
  4. AVAPRO [Concomitant]
     Active Substance: IRBESARTAN
     Dosage: UNK

REACTIONS (1)
  - Foot fracture [Recovered/Resolved]
